FAERS Safety Report 5488542-1 (Version None)
Quarter: 2007Q4

REPORT INFORMATION
  Report Type: 
  Country: None (occurrence: None)
  Receive Date: 20071016
  Receipt Date: 20071008
  Transmission Date: 20080405
  Serious: Yes (Hospitalization)
  Sender: FDA-Public Use
  Company Number: FR-ASTRAZENECA-2007CG01419

PATIENT
  Age: 12913 Day
  Sex: Male

DRUGS (10)
  1. DIPRIVAN [Suspect]
     Indication: ANAESTHESIA
     Route: 042
     Dates: start: 20060309, end: 20060309
  2. DIPRIVAN [Suspect]
     Route: 042
     Dates: start: 20060309, end: 20060309
  3. DIPRIVAN [Suspect]
     Route: 042
     Dates: start: 20060309, end: 20060309
  4. DIPRIVAN [Suspect]
     Route: 042
     Dates: start: 20060309, end: 20060309
  5. HYPNOVEL [Suspect]
     Indication: ANAESTHESIA
     Route: 042
     Dates: start: 20060309, end: 20060309
  6. SUFENTANIL [Suspect]
     Indication: ANAESTHESIA
     Route: 042
     Dates: start: 20060309, end: 20060309
  7. SUFENTANIL [Suspect]
     Route: 042
     Dates: start: 20060309, end: 20060309
  8. DALACIN [Suspect]
     Route: 042
     Dates: start: 20060309, end: 20060309
  9. GENTAMICIN [Suspect]
     Route: 042
     Dates: start: 20060309, end: 20060309
  10. ATARAX [Concomitant]
     Indication: PREMEDICATION
     Route: 048
     Dates: start: 20060309, end: 20060309

REACTIONS (2)
  - HYPERSENSITIVITY [None]
  - HYPOTENSION [None]
